FAERS Safety Report 13883008 (Version 1)
Quarter: 2017Q3

REPORT INFORMATION
  Report Type: Spontaneous
  Country: LB (occurrence: LB)
  Receive Date: 20170818
  Receipt Date: 20170818
  Transmission Date: 20171127
  Serious: Yes (Death)
  Sender: FDA-Public Use
  Company Number: LB-NOVOPROD-554905

PATIENT
  Sex: Male

DRUGS (2)
  1. NOVOSEVEN [Suspect]
     Active Substance: COAGULATION FACTOR VIIA RECOMBINANT HUMAN
     Indication: HAEMORRHAGE
     Dosage: UNK(3 DOSES PER WEEK, EVERY DOSE EQUIVALENT TO 1 MG)
     Route: 065
  2. NOVOSEVEN [Suspect]
     Active Substance: COAGULATION FACTOR VIIA RECOMBINANT HUMAN
     Indication: HAEMATURIA

REACTIONS (2)
  - Death [Fatal]
  - Off label use [Unknown]
